FAERS Safety Report 7673845-2 (Version None)
Quarter: 2011Q3

REPORT INFORMATION
  Report Type: 
  Country: None (occurrence: None)
  Receive Date: 20110810
  Receipt Date: 20110727
  Transmission Date: 20111222
  Serious: No
  Sender: FDA-Public Use
  Company Number: US-B.I. PHARMACEUTICALS,INC./RIDGEFIELD-2011-BP-17138BP

PATIENT
  Age: 71 Year
  Sex: Female

DRUGS (8)
  1. PREDNISONE [Concomitant]
     Indication: CHRONIC OBSTRUCTIVE PULMONARY DISEASE
     Dates: start: 20110616
  2. ZOCOR [Concomitant]
  3. HCTZ/TRAIMTERENE [Concomitant]
  4. LISINOPRIL [Concomitant]
  5. ACTOS [Concomitant]
     Indication: DIABETES MELLITUS
     Dates: start: 20080101
  6. SPIRIVA [Suspect]
     Indication: CHRONIC OBSTRUCTIVE PULMONARY DISEASE
     Dosage: 18 MCG
     Route: 055
     Dates: start: 20110601
  7. ALLOPURINOL [Concomitant]
  8. PRILOSEC [Concomitant]

REACTIONS (3)
  - OEDEMA PERIPHERAL [None]
  - DRUG INEFFECTIVE [None]
  - DRY MOUTH [None]
